FAERS Safety Report 12856931 (Version 1)
Quarter: 2016Q4

REPORT INFORMATION
  Report Type: Spontaneous
  Country: US (occurrence: US)
  Receive Date: 20161018
  Receipt Date: 20161018
  Transmission Date: 20170207
  Serious: Yes (Hospitalization)
  Sender: FDA-Public Use
  Company Number: None

PATIENT
  Age: 87 Year
  Sex: Male
  Weight: 79.45 kg

DRUGS (11)
  1. VITAMIN E [Concomitant]
     Active Substance: .ALPHA.-TOCOPHEROL
  2. COQ10 + B-100 COMPLEX [Concomitant]
  3. ACCUPRIL [Concomitant]
     Active Substance: QUINAPRIL HYDROCHLORIDE
  4. METOPROLOL SUCC (TOPROL) ER [Concomitant]
  5. SYNTHROID [Concomitant]
     Active Substance: LEVOTHYROXINE SODIUM
  6. VITAMIN C [Concomitant]
     Active Substance: ASCORBIC ACID
  7. FLOMMAX [Concomitant]
  8. HYOSCYAMINE 0.125MG SUBLINGUAL TABS VIIRTUS [Suspect]
     Active Substance: HYOSCYAMINE SULFATE
     Indication: NOCTURIA
     Dosage: 1-2 TABLETS?
     Route: 048
     Dates: start: 20160903, end: 20160920
  9. HYOSCYAMINE. [Concomitant]
     Active Substance: HYOSCYAMINE
  10. VITAMIN D [Concomitant]
     Active Substance: CHOLECALCIFEROL
  11. LUTIGOLD EXTRA [Concomitant]

REACTIONS (2)
  - Hyperhidrosis [None]
  - Vasodilatation [None]

NARRATIVE: CASE EVENT DATE: 20160911
